FAERS Safety Report 8030368-9 (Version None)
Quarter: 2012Q1

REPORT INFORMATION
  Report Type: 
  Country: None (occurrence: None)
  Receive Date: 20120109
  Receipt Date: 20120109
  Transmission Date: 20120608
  Serious: Yes (Life-Threatening, Hospitalization)
  Sender: FDA-Public Use
  Company Number: None

PATIENT
  Age: 61 Year
  Sex: Male
  Weight: 102.05 kg

DRUGS (2)
  1. WARFARIN SODIUM [Suspect]
     Indication: GASTROOESOPHAGEAL REFLUX DISEASE
     Dosage: ONE TABLET
     Route: 048
     Dates: start: 20111209, end: 20111225
  2. RANITIDINE [Concomitant]

REACTIONS (6)
  - WRONG DRUG ADMINISTERED [None]
  - ABDOMINAL PAIN [None]
  - INTERNATIONAL NORMALISED RATIO INCREASED [None]
  - MEDICATION ERROR [None]
  - BLOOD URINE PRESENT [None]
  - DRUG DISPENSING ERROR [None]
